FAERS Safety Report 13457612 (Version 1)
Quarter: 2017Q2

REPORT INFORMATION
  Report Type: Spontaneous
  Country: GB (occurrence: GB)
  Receive Date: 20170419
  Receipt Date: 20170419
  Transmission Date: 20170830
  Serious: Yes (Other)
  Sender: FDA-Public Use
  Company Number: GB-BAUSCH-BL-2017-009515

PATIENT
  Age: 53 Year
  Sex: Female
  Weight: 57 kg

DRUGS (5)
  1. CELECOXIB. [Concomitant]
     Active Substance: CELECOXIB
     Indication: PRODUCT USED FOR UNKNOWN INDICATION
  2. CLARITHROMYCIN. [Concomitant]
     Active Substance: CLARITHROMYCIN
     Indication: SINUSITIS
  3. PREDNISOLONE. [Suspect]
     Active Substance: PREDNISOLONE
     Route: 045
     Dates: start: 20170317
  4. PREDNISOLONE. [Suspect]
     Active Substance: PREDNISOLONE
     Indication: SINUSITIS
     Route: 048
     Dates: start: 20170310, end: 20170314
  5. AMOXICILLIN. [Concomitant]
     Active Substance: AMOXICILLIN
     Indication: SINUSITIS

REACTIONS (9)
  - Tremor [Recovered/Resolved]
  - Hypersensitivity [Recovered/Resolved]
  - Respiratory tract oedema [Recovered/Resolved]
  - Sinus pain [Recovered/Resolved]
  - Pruritus [Recovered/Resolved]
  - Sinus congestion [Recovered/Resolved]
  - Headache [Recovering/Resolving]
  - Wheezing [Recovered/Resolved]
  - Condition aggravated [Recovered/Resolved]

NARRATIVE: CASE EVENT DATE: 20170314
